FAERS Safety Report 6990292-7 (Version None)
Quarter: 2010Q3

REPORT INFORMATION
  Report Type: 
  Country: None (occurrence: None)
  Receive Date: 20100916
  Receipt Date: 20100609
  Transmission Date: 20110219
  Serious: Yes (Hospitalization, Other)
  Sender: FDA-Public Use
  Company Number: US-PFIZER INC-2009171240

PATIENT
  Sex: Female
  Weight: 90.703 kg

DRUGS (21)
  1. ZOLOFT [Suspect]
     Indication: DEPRESSION
     Dosage: 75 MG, 1X/DAY
     Route: 048
     Dates: start: 20080101
  2. LYRICA [Suspect]
     Indication: PAIN
     Dosage: 75 MG, 3X/DAY
     Route: 048
     Dates: start: 20070101
  3. LYRICA [Suspect]
     Indication: BACK DISORDER
  4. DEPO-ESTRADIOL [Suspect]
     Indication: RADICAL HYSTERECTOMY
     Dosage: 5 MG, UNK
  5. ADVAIR DISKUS 100/50 [Concomitant]
     Dosage: UNK
     Route: 055
  6. SEROQUEL [Concomitant]
     Indication: RESTLESSNESS
     Dosage: 200 MG, UNK
  7. DUONEB [Concomitant]
     Dosage: UNK
  8. MONTELUKAST [Concomitant]
     Dosage: UNK
  9. K-DUR [Concomitant]
     Dosage: 20 MEQ, UNK
  10. LASIX [Concomitant]
     Indication: FLUID OVERLOAD
     Dosage: UNK
  11. NEXIUM [Concomitant]
     Indication: REFLUX OESOPHAGITIS
     Dosage: UNK
  12. NEXIUM [Concomitant]
     Dosage: FREQUENCY: 2X/DAY,
  13. CRESTOR [Concomitant]
     Indication: BLOOD CHOLESTEROL
     Dosage: UNK
  14. CRESTOR [Concomitant]
  15. LEVOXYL [Concomitant]
     Indication: THYROID DISORDER
     Dosage: UNK
  16. VITAMINS [Concomitant]
     Dosage: UNK
  17. MUCINEX [Concomitant]
     Dosage: UNK
  18. SPIRIVA [Concomitant]
     Route: 055
  19. PREDNISONE [Concomitant]
  20. PROMETHAZINE [Concomitant]
     Indication: NAUSEA
     Dosage: FREQUENCY: AS NEEDED,
  21. OXYGEN [Concomitant]
     Indication: CHRONIC OBSTRUCTIVE PULMONARY DISEASE
     Route: 055

REACTIONS (7)
  - ASTHMA [None]
  - BLOOD PRESSURE ABNORMAL [None]
  - CHRONIC OBSTRUCTIVE PULMONARY DISEASE [None]
  - FALL [None]
  - NERVOUSNESS [None]
  - PNEUMONIA [None]
  - UPPER LIMB FRACTURE [None]
